FAERS Safety Report 6171345-2 (Version None)
Quarter: 2009Q2

REPORT INFORMATION
  Report Type: 
  Country: None (occurrence: None)
  Receive Date: 20090429
  Receipt Date: 20090427
  Transmission Date: 20091009
  Serious: Yes (Other)
  Sender: FDA-Public Use
  Company Number: JP-BRISTOL-MYERS SQUIBB COMPANY-14601488

PATIENT
  Age: 31 Year
  Sex: Male

DRUGS (3)
  1. CISPLATIN [Suspect]
     Indication: TESTICULAR NEOPLASM
  2. ETOPOSIDE [Suspect]
     Indication: TESTICULAR NEOPLASM
  3. BLEOMYCIN SULFATE [Suspect]
     Indication: TESTICULAR NEOPLASM

REACTIONS (3)
  - CEREBRAL INFARCTION [None]
  - DIARRHOEA [None]
  - NAUSEA [None]
